FAERS Safety Report 8956180 (Version 2)
Quarter: 2012Q4

REPORT INFORMATION
  Report Type: 
  Country: BR (occurrence: BR)
  Receive Date: 20121210
  Receipt Date: 20121213
  Transmission Date: 20130627
  Serious: Yes (Hospitalization, Other)
  Sender: FDA-Public Use
  Company Number: BR-JNJFOC-20121202953

PATIENT
  Age: 3 Month
  Sex: Female
  Weight: 6.5 kg

DRUGS (1)
  1. INFANT^S TYLENOL [Suspect]
     Indication: IMMUNISATION
     Dosage: 100 mg/ml
     Route: 048
     Dates: start: 20121130

REACTIONS (4)
  - Accidental overdose [Recovered/Resolved]
  - Anaemia [Recovered/Resolved]
  - Jaundice [Recovered/Resolved]
  - Gamma-glutamyltransferase increased [Unknown]
